FAERS Safety Report 20184870 (Version 3)
Quarter: 2022Q2

REPORT INFORMATION
  Report Type: Spontaneous
  Country: CZ (occurrence: CZ)
  Receive Date: 20211214
  Receipt Date: 20220608
  Transmission Date: 20220721
  Serious: Yes (Other)
  Sender: FDA-Public Use
  Company Number: CZ-EMA-DD-20211203-Bisht_p-165331

PATIENT
  Age: 46 Year
  Sex: Female

DRUGS (2)
  1. METOPROLOL [Suspect]
     Active Substance: METOPROLOL
     Indication: Migraine
     Dosage: 50 MILLIGRAM, ONCE A DAY
     Route: 048
     Dates: start: 201601, end: 2016
  2. METOPROLOL [Suspect]
     Active Substance: METOPROLOL
     Indication: Migraine without aura

REACTIONS (1)
  - Presyncope [Recovered/Resolved]

NARRATIVE: CASE EVENT DATE: 20160101
